FAERS Safety Report 14231733 (Version 2)
Quarter: 2017Q4

REPORT INFORMATION
  Report Type: Spontaneous
  Country: AU (occurrence: AU)
  Receive Date: 20171128
  Receipt Date: 20171219
  Transmission Date: 20180321
  Serious: Yes (Other)
  Sender: FDA-Public Use
  Company Number: AU-LPDUSPRD-20171628

PATIENT
  Age: 19 Year
  Sex: Female

DRUGS (1)
  1. FERINJECT [Suspect]
     Active Substance: FERRIC CARBOXYMALTOSE
     Dosage: 1000 MG
     Route: 041
     Dates: start: 20170327

REACTIONS (4)
  - Rash pruritic [Unknown]
  - Respiratory distress [Unknown]
  - Throat tightness [Unknown]
  - Nausea [Unknown]

NARRATIVE: CASE EVENT DATE: 20170327
